FAERS Safety Report 23067180 (Version 1)
Quarter: 2023Q4

REPORT INFORMATION
  Report Type: Report from Study
  Country: US (occurrence: US)
  Receive Date: 20231016
  Receipt Date: 20231016
  Transmission Date: 20240109
  Serious: Yes (Hospitalization)
  Sender: FDA-Public Use
  Company Number: US-ABBVIE-5449256

PATIENT
  Sex: Male

DRUGS (5)
  1. SKYRIZI [Suspect]
     Active Substance: RISANKIZUMAB-RZAA
     Indication: Crohn^s disease
     Dosage: STRENGTH: 360MG/2.4ML, WEEK 12
     Route: 058
     Dates: start: 20221128, end: 20221128
  2. SKYRIZI [Suspect]
     Active Substance: RISANKIZUMAB-RZAA
     Dosage: STRENGTH: 360MG/2.4ML?THEN EVERY 8 WEEKS THEREAFTER
     Route: 058
     Dates: start: 202301
  3. SKYRIZI [Suspect]
     Active Substance: RISANKIZUMAB-RZAA
     Indication: Crohn^s disease
     Dosage: STRENGTH: 600MG/10ML, WEEK 0
     Route: 042
     Dates: start: 20220905, end: 20220905
  4. SKYRIZI [Suspect]
     Active Substance: RISANKIZUMAB-RZAA
     Indication: Crohn^s disease
     Dosage: STRENGTH: 600MG/10ML, WEEK 4
     Route: 042
     Dates: start: 20221003, end: 20221003
  5. SKYRIZI [Suspect]
     Active Substance: RISANKIZUMAB-RZAA
     Indication: Crohn^s disease
     Dosage: STRENGTH: 600MG/10ML, WEEK 8
     Route: 042
     Dates: start: 20221031, end: 20221031

REACTIONS (10)
  - Muscle spasms [Recovering/Resolving]
  - Pain [Recovering/Resolving]
  - Therapeutic product effect decreased [Unknown]
  - Insomnia [Unknown]
  - Device issue [Unknown]
  - Diarrhoea [Unknown]
  - Gastrointestinal sounds abnormal [Unknown]
  - General physical health deterioration [Unknown]
  - Decreased appetite [Unknown]
  - Fatigue [Unknown]
